FAERS Safety Report 12702505 (Version 2)
Quarter: 2016Q4

REPORT INFORMATION
  Report Type: Spontaneous
  Country: US (occurrence: US)
  Receive Date: 20160831
  Receipt Date: 20161025
  Transmission Date: 20170207
  Serious: No
  Sender: FDA-Public Use
  Company Number: US-JNJFOC-20160814155

PATIENT
  Age: 60 Year
  Sex: Female
  Weight: 111.13 kg

DRUGS (9)
  1. METHOTREXATE. [Concomitant]
     Active Substance: METHOTREXATE
     Indication: PSORIATIC ARTHROPATHY
     Dosage: 12.5 TO 30 MG
     Route: 065
     Dates: start: 20140704
  2. STELARA [Suspect]
     Active Substance: USTEKINUMAB
     Indication: PSORIASIS
     Route: 058
     Dates: start: 201606
  3. STELARA [Suspect]
     Active Substance: USTEKINUMAB
     Indication: PSORIASIS
     Route: 058
     Dates: start: 20130610, end: 201606
  4. METHOTREXATE. [Concomitant]
     Active Substance: METHOTREXATE
     Indication: PSORIASIS
     Dosage: 12.5 TO 30 MG
     Route: 065
     Dates: start: 20140704
  5. FOLATE [Concomitant]
     Active Substance: FOLATE SODIUM
     Indication: PSORIASIS
     Route: 065
  6. STELARA [Suspect]
     Active Substance: USTEKINUMAB
     Indication: PSORIASIS
     Route: 058
     Dates: start: 20160808
  7. FOLATE [Concomitant]
     Active Substance: FOLATE SODIUM
     Indication: PSORIATIC ARTHROPATHY
     Route: 065
  8. TRIAMCINOLONE [Concomitant]
     Active Substance: TRIAMCINOLONE
     Indication: PSORIASIS
     Route: 065
     Dates: start: 2005
  9. TRIAMCINOLONE [Concomitant]
     Active Substance: TRIAMCINOLONE
     Indication: PSORIATIC ARTHROPATHY
     Route: 065
     Dates: start: 2005

REACTIONS (2)
  - Granuloma annulare [Not Recovered/Not Resolved]
  - Psoriasis [Not Recovered/Not Resolved]

NARRATIVE: CASE EVENT DATE: 20160808
